FAERS Safety Report 14571586 (Version 9)
Quarter: 2021Q3

REPORT INFORMATION
  Report Type: Spontaneous
  Country: US (occurrence: US)
  Receive Date: 20180226
  Receipt Date: 20210907
  Transmission Date: 20211014
  Serious: No
  Sender: FDA-Public Use
  Company Number: US-PFIZER INC-2018076749

PATIENT
  Age: 58 Year
  Sex: Male

DRUGS (5)
  1. LYRICA [Suspect]
     Active Substance: PREGABALIN
     Dosage: 450 MG, 3X/DAY (TAKE 3 CAPS 3 TIMES A DAY BY ORAL ROUTE FOR 30 DAYS)
     Route: 048
  2. LYRICA [Suspect]
     Active Substance: PREGABALIN
     Dosage: 450 MG, DAILY (150 MG IN THE MORNING AND 300 MG IN THE EVENING)
     Route: 048
  3. LYRICA [Suspect]
     Active Substance: PREGABALIN
     Indication: DIABETIC NEUROPATHY
     Dosage: 450 MG, DAILY (TAKE 150 MG AT EVERY AM AND 150 MG 2X AT EVERY EVENING)
     Route: 048
     Dates: start: 2017, end: 2017
  4. LYRICA [Suspect]
     Active Substance: PREGABALIN
     Indication: NEURALGIA
     Dosage: 150 MG, 3X/DAY (1 IN THE MORNING AND 2 AT BED TIME/1 PO EVERY AM AND 2 PO EVERY EVENING)
     Route: 048
     Dates: start: 2017
  5. LYRICA [Suspect]
     Active Substance: PREGABALIN
     Dosage: 150 MG, 3X/DAY
     Route: 048

REACTIONS (3)
  - Somnolence [Recovered/Resolved]
  - Drug ineffective [Unknown]
  - Overdose [Unknown]

NARRATIVE: CASE EVENT DATE: 2017
